FAERS Safety Report 6729383-4 (Version None)
Quarter: 2010Q2

REPORT INFORMATION
  Report Type: 
  Country: None (occurrence: None)
  Receive Date: 20100518
  Receipt Date: 20100513
  Transmission Date: 20101027
  Serious: Yes (Other)
  Sender: FDA-Public Use
  Company Number: US-ASTRAZENECA-2009UW13271

PATIENT
  Age: 20596 Day
  Sex: Female
  Weight: 90.7 kg

DRUGS (17)
  1. SEROQUEL [Suspect]
     Indication: SCHIZOPHRENIA, PARANOID TYPE
     Route: 048
     Dates: start: 20010409, end: 20080204
  2. SEROQUEL [Suspect]
     Dosage: 25 MG - 600 MG
     Route: 048
     Dates: start: 20010409, end: 20070101
  3. SEROQUEL [Suspect]
     Dosage: 25 MG QAM PLUS Q 3 PM PLUS 200 MG PO QHS
     Route: 048
     Dates: start: 20030822
  4. ABILIFY [Concomitant]
     Dates: start: 20070101
  5. HALDOL [Concomitant]
     Dosage: 125 MG IM Q FOUR WEEKS
     Dates: start: 20030101
  6. KLONOPIN [Concomitant]
     Indication: ANXIETY
     Dosage: 1 MG PO QAM PLUS QHS
     Route: 048
     Dates: start: 20030801
  7. KLONOPIN [Concomitant]
     Dates: start: 20060508
  8. KLONOPIN [Concomitant]
     Dates: start: 20080204
  9. TRAZODONE HCL [Concomitant]
     Indication: SLEEP DISORDER
     Dosage: 50 MG TABLET 1/2 HS
     Dates: start: 19990607
  10. TRAZODONE HCL [Concomitant]
     Dates: start: 20060517
  11. COGENTIN [Concomitant]
     Dosage: 1-4MG
     Route: 048
     Dates: start: 19990607
  12. ZYPREXA [Concomitant]
     Dosage: 10-15 MG
     Dates: start: 19990607
  13. XANAX [Concomitant]
     Dates: start: 19990607
  14. SIMVASTATIN [Concomitant]
  15. LISINOPRIL [Concomitant]
  16. LITHIUM CARBONATE [Concomitant]
     Dosage: 300 MG PO QAM PLUS 600 PO QHS
     Dates: start: 20030801
  17. ATIVAN [Concomitant]

REACTIONS (12)
  - BLOOD CHOLESTEROL INCREASED [None]
  - BRUXISM [None]
  - DIABETES MELLITUS [None]
  - GINGIVAL PAIN [None]
  - HEPATITIS C [None]
  - HYPERLIPIDAEMIA [None]
  - MUSCLE RIGIDITY [None]
  - NEUROPATHY PERIPHERAL [None]
  - OBESITY [None]
  - PAIN [None]
  - TREMOR [None]
  - TYPE 2 DIABETES MELLITUS [None]
